FAERS Safety Report 6720650-7 (Version None)
Quarter: 2010Q2

REPORT INFORMATION
  Report Type: 
  Country: None (occurrence: None)
  Receive Date: 20100511
  Receipt Date: 20100428
  Transmission Date: 20101027
  Serious: Yes (Death, Other)
  Sender: FDA-Public Use
  Company Number: IT-MYLANLABS-2010S1007372

PATIENT
  Sex: Female

DRUGS (2)
  1. CARBOPLATIN [Suspect]
     Indication: CHEMOTHERAPY
     Dosage: 5.5 MG/KG ON DAYS 1, 2 AND 3
     Route: 065
  2. ETOPOSIDE [Suspect]
     Indication: CHEMOTHERAPY
     Dosage: 4.5 MG/KG ON DAYS 1, 2 AND 3
     Route: 065

REACTIONS (5)
  - DISSEMINATED INTRAVASCULAR COAGULATION [None]
  - FUNGAL INFECTION [None]
  - PANCYTOPENIA [None]
  - PYREXIA [None]
  - VENOOCCLUSIVE DISEASE [None]
